FAERS Safety Report 7494148-5 (Version None)
Quarter: 2011Q2

REPORT INFORMATION
  Report Type: 
  Country: None (occurrence: None)
  Receive Date: 20110520
  Receipt Date: 20110513
  Transmission Date: 20111010
  Serious: Yes (Other)
  Sender: FDA-Public Use
  Company Number: BR-JNJFOC-20110503765

PATIENT
  Age: 71 Year
  Sex: Female
  Weight: 78 kg

DRUGS (12)
  1. MYLICON GOTAS [Suspect]
     Indication: GASTROOESOPHAGEAL REFLUX DISEASE
     Route: 048
     Dates: start: 20110430, end: 20110501
  2. GINGKO BILOBA (CHINESE HERB) [Concomitant]
     Indication: MEMORY IMPAIRMENT
     Route: 048
     Dates: start: 20110306
  3. PIRACETAM [Concomitant]
     Indication: MEMORY IMPAIRMENT
     Route: 048
     Dates: start: 20110306
  4. MOTILIUM [Suspect]
     Indication: GASTROOESOPHAGEAL REFLUX DISEASE
     Route: 048
     Dates: start: 20110429, end: 20110430
  5. MELOXICAM [Concomitant]
     Indication: OSTEOARTHRITIS
     Route: 048
     Dates: start: 20110306
  6. CYCLOBENZAPRINE [Concomitant]
     Indication: OSTEOARTHRITIS
     Route: 048
     Dates: start: 20110306
  7. ACETAMINOPHEN [Concomitant]
     Indication: OSTEOARTHRITIS
     Route: 048
     Dates: start: 20110306
  8. CASCARA SAGRADA [Suspect]
     Indication: PRODUCT USED FOR UNKNOWN INDICATION
     Route: 065
  9. CIMETIDINE [Concomitant]
     Indication: OSTEOARTHRITIS
     Route: 048
     Dates: start: 20110306
  10. PURAN T4 [Concomitant]
     Indication: HYPOTHYROIDISM
     Route: 048
     Dates: start: 20110401
  11. DIACEREIN [Concomitant]
     Indication: OSTEOARTHRITIS
     Route: 048
     Dates: start: 20110306
  12. CHLOROQUINE DIPHOSPHATE [Concomitant]
     Indication: OSTEOARTHRITIS
     Route: 048
     Dates: start: 20110306

REACTIONS (4)
  - FLATULENCE [None]
  - DISCOMFORT [None]
  - DIVERTICULITIS [None]
  - ABDOMINAL PAIN [None]
